FAERS Safety Report 16722099 (Version 3)
Quarter: 2019Q3

REPORT INFORMATION
  Report Type: Report from Study
  Country: CA (occurrence: CA)
  Receive Date: 20190820
  Receipt Date: 20190910
  Transmission Date: 20191005
  Serious: Yes (Death, Other)
  Sender: FDA-Public Use
  Company Number: CA-TAKEDA-2018TUS029200

PATIENT
  Age: 69 Year
  Sex: Male

DRUGS (17)
  1. ITRACONAZOLE. [Concomitant]
     Active Substance: ITRACONAZOLE
     Dosage: UNK
  2. VENTOLIN [Concomitant]
     Active Substance: ALBUTEROL SULFATE
     Dosage: UNK
  3. VITAMIN B12 [Concomitant]
     Active Substance: CYANOCOBALAMIN
     Dosage: UNK
  4. VEDOLIZUMAB [Suspect]
     Active Substance: VEDOLIZUMAB
     Dosage: 300 MILLIGRAM
     Route: 042
  5. VEDOLIZUMAB [Suspect]
     Active Substance: VEDOLIZUMAB
     Dosage: 300 MILLIGRAM
     Route: 042
  6. BREO ELLIPTA [Concomitant]
     Active Substance: FLUTICASONE FUROATE\VILANTEROL TRIFENATATE
     Dosage: UNK
  7. RABEPRAZOLE [Concomitant]
     Active Substance: RABEPRAZOLE
     Dosage: UNK
  8. PREDNISONE. [Concomitant]
     Active Substance: PREDNISONE
     Dosage: 10 MILLIGRAM
  9. ZOPICLONE [Concomitant]
     Active Substance: ZOPICLONE
     Dosage: UNK
  10. VEDOLIZUMAB [Suspect]
     Active Substance: VEDOLIZUMAB
     Dosage: 300 MILLIGRAM
     Route: 042
     Dates: end: 20190816
  11. SPIRIVA [Concomitant]
     Active Substance: TIOTROPIUM BROMIDE MONOHYDRATE
     Dosage: UNK
  12. VEDOLIZUMAB [Suspect]
     Active Substance: VEDOLIZUMAB
     Indication: CROHN^S DISEASE
     Dosage: 300 MILLIGRAM
     Route: 042
     Dates: start: 20180919
  13. COLACE [Concomitant]
     Active Substance: DOCUSATE SODIUM
     Dosage: UNK
  14. PANTOLOC                           /01263204/ [Concomitant]
     Active Substance: PANTOPRAZOLE SODIUM
     Dosage: UNK
  15. LEVOTHYROXINE. [Concomitant]
     Active Substance: LEVOTHYROXINE
     Dosage: UNK
  16. VEDOLIZUMAB [Suspect]
     Active Substance: VEDOLIZUMAB
     Dosage: 300 MILLIGRAM
     Route: 042
  17. CHOLESTYRAMINE. [Concomitant]
     Active Substance: CHOLESTYRAMINE
     Dosage: UNK

REACTIONS (16)
  - Pneumonia [Not Recovered/Not Resolved]
  - Multiple organ dysfunction syndrome [Unknown]
  - Lower respiratory tract infection [Not Recovered/Not Resolved]
  - Poor venous access [Unknown]
  - Infusion site swelling [Unknown]
  - Infusion site extravasation [Unknown]
  - Lung disorder [Unknown]
  - Blood pressure increased [Unknown]
  - Dyspnoea exertional [Unknown]
  - Weight increased [Unknown]
  - Weight decreased [Unknown]
  - Arthralgia [Not Recovered/Not Resolved]
  - Death [Fatal]
  - Crohn^s disease [Unknown]
  - Blood pressure decreased [Unknown]
  - Productive cough [Not Recovered/Not Resolved]

NARRATIVE: CASE EVENT DATE: 2018
